FAERS Safety Report 18250264 (Version 2)
Quarter: 2021Q2

REPORT INFORMATION
  Report Type: Spontaneous
  Country: US (occurrence: US)
  Receive Date: 20200909
  Receipt Date: 20210406
  Transmission Date: 20210717
  Serious: Yes (Death, Other)
  Sender: FDA-Public Use
  Company Number: US-PURDUE-USA-2020-0165181

PATIENT
  Age: 87 Year
  Sex: Male

DRUGS (1)
  1. OXYCONTIN [Suspect]
     Active Substance: OXYCODONE HYDROCHLORIDE
     Indication: PRODUCT USED FOR UNKNOWN INDICATION
     Route: 048

REACTIONS (8)
  - Renal tubular necrosis [Fatal]
  - Hallucination [Unknown]
  - Fall [Unknown]
  - Hypoxia [Fatal]
  - Pain [Unknown]
  - Apnoea [Fatal]
  - Confusional state [Unknown]
  - Aspiration [Fatal]

NARRATIVE: CASE EVENT DATE: 20051213
